FAERS Safety Report 5750444-0 (Version None)
Quarter: 2008Q2

REPORT INFORMATION
  Report Type: 
  Country: None (occurrence: None)
  Receive Date: 20080528
  Receipt Date: 20070712
  Transmission Date: 20081010
  Serious: No
  Sender: FDA-Public Use
  Company Number: US-KINGPHARMUSA00001-K200700890

PATIENT

DRUGS (16)
  1. AVINZA [Suspect]
     Indication: BACK PAIN
     Dosage: 30 MG, TID
     Route: 048
  2. AVINZA [Suspect]
     Dosage: 120 MG, TID
     Route: 048
  3. AVINZA [Suspect]
     Dosage: 150 MG, TID
     Route: 048
  4. MORPHINE [Concomitant]
     Indication: PAIN
     Dosage: 15 MG, Q4H
  5. RAZADYNE [Concomitant]
     Indication: MEMORY IMPAIRMENT
     Dosage: 100 MG, QD
  6. ZOCOR [Concomitant]
     Dosage: 20 MG, QD
  7. TRICOR  /00499301/ [Concomitant]
     Dosage: 145 MG, QD
  8. TOPROL-XL [Concomitant]
     Dosage: 50 MG, QD
  9. AMANTADINE HCL [Concomitant]
     Indication: SUPPLEMENTATION THERAPY
     Dosage: 100 MG, BID
  10. NEXIUM [Concomitant]
     Dosage: 40 MG, QD
  11. TRAZODONE HCL [Concomitant]
     Dosage: 400 MG, QHS
  12. COMBIVENT  /01033501/ [Concomitant]
  13. FLOVENT [Concomitant]
  14. NASONEX [Concomitant]
  15. LIDODERM [Concomitant]
     Dosage: UNK, TID
  16. ASPIRIN [Concomitant]

REACTIONS (2)
  - DRUG INEFFECTIVE [None]
  - INTENTIONAL DRUG MISUSE [None]
